FAERS Safety Report 7199232-1 (Version None)
Quarter: 2010Q4

REPORT INFORMATION
  Report Type: 
  Country: None (occurrence: None)
  Receive Date: 20101228
  Receipt Date: 20101221
  Transmission Date: 20110411
  Serious: Yes (Death, Other)
  Sender: FDA-Public Use
  Company Number: CH-ASTELLAS-2010EU006854

PATIENT
  Age: 34 Year
  Sex: Male

DRUGS (6)
  1. TACROLIMUS SYSTEMIC [Suspect]
     Indication: BONE MARROW TRANSPLANT
     Dosage: UNK
     Route: 065
  2. CORTICOSTEROID NOS [Suspect]
     Indication: BONE MARROW TRANSPLANT
     Dosage: UNK
     Route: 065
  3. MYCOPHENOLATE MOFETIL [Suspect]
     Indication: BONE MARROW TRANSPLANT
     Dosage: UNK
     Route: 065
  4. CIPROFLOXACIN HCL [Concomitant]
     Dosage: UNK
     Route: 065
  5. METRONIDAZOLE [Concomitant]
     Dosage: UNK
     Route: 065
  6. VORICONAZOLE [Concomitant]
     Dosage: UNK
     Route: 065

REACTIONS (2)
  - FUNGAL ABSCESS CENTRAL NERVOUS SYSTEM [None]
  - GRAFT VERSUS HOST DISEASE [None]
